FAERS Safety Report 13189562 (Version 1)
Quarter: 2017Q1

REPORT INFORMATION
  Report Type: Spontaneous
  Country: US (occurrence: US)
  Receive Date: 20170206
  Receipt Date: 20170206
  Transmission Date: 20170428
  Serious: No
  Sender: FDA-Public Use
  Company Number: US-DSJP-DSU-2016-102575

PATIENT
  Age: 78 Year
  Weight: 52.61 kg

DRUGS (11)
  1. LEVAQUIN [Suspect]
     Active Substance: LEVOFLOXACIN
     Indication: RESPIRATORY TRACT INFECTION
  2. VITAMIN D                          /00107901/ [Concomitant]
     Active Substance: ERGOCALCIFEROL
     Indication: PRODUCT USED FOR UNKNOWN INDICATION
     Dosage: UNK
  3. E-Z TEARS [Concomitant]
     Indication: DRY EYE
     Dosage: UNK
  4. MULTIVITAMIN                       /00097801/ [Concomitant]
     Active Substance: VITAMINS
     Indication: VITAMIN SUPPLEMENTATION
     Dosage: UNK
  5. PREMARIN [Concomitant]
     Active Substance: ESTROGENS, CONJUGATED
     Indication: PRODUCT USED FOR UNKNOWN INDICATION
     Dosage: 1 G, TWICE EVERY 1WK
     Route: 067
  6. LEVAQUIN [Suspect]
     Active Substance: LEVOFLOXACIN
     Indication: SINUSITIS
     Dosage: UNK
     Dates: end: 2015
  7. CALCIUM [Concomitant]
     Active Substance: CALCIUM
     Indication: PRODUCT USED FOR UNKNOWN INDICATION
     Dosage: UNK
  8. OASIS EYE DROPS [Concomitant]
     Indication: DRY EYE
     Dosage: UNK
  9. EVOXAC AG [Suspect]
     Active Substance: CEVIMELINE HYDROCHLORIDE
     Indication: DRY EYE
     Dosage: 30 MG, TID
     Route: 048
     Dates: start: 2015, end: 20160115
  10. EVISTA [Concomitant]
     Active Substance: RALOXIFENE HYDROCHLORIDE
     Indication: BONE LOSS
     Dosage: 60 MG, QD
     Route: 048
  11. EYEPROMISE RESTORE [Concomitant]
     Indication: DRY EYE
     Dosage: UNK

REACTIONS (3)
  - Anosmia [Not Recovered/Not Resolved]
  - Ageusia [Not Recovered/Not Resolved]
  - Off label use [Recovered/Resolved]

NARRATIVE: CASE EVENT DATE: 2015
